FAERS Safety Report 14023220 (Version 1)
Quarter: 2017Q3

REPORT INFORMATION
  Report Type: Spontaneous
  Country: DE (occurrence: DE)
  Receive Date: 20170929
  Receipt Date: 20170929
  Transmission Date: 20171128
  Serious: Yes (Hospitalization)
  Sender: FDA-Public Use
  Company Number: DE-TEVA-809579GER

PATIENT
  Age: 54 Year
  Sex: Female

DRUGS (2)
  1. ATORVASTATIN-RATIOPHARM 10 MG FILMTABLETTEN [Suspect]
     Active Substance: ATORVASTATIN
     Indication: HYPERCHOLESTEROLAEMIA
     Dosage: 10 MILLIGRAM DAILY;
     Route: 048
     Dates: start: 20170811, end: 20170906
  2. BISOPROLOL 2.5 MG [Concomitant]
     Active Substance: BISOPROLOL
     Indication: NODAL ARRHYTHMIA
     Dosage: 5 MILLIGRAM DAILY;

REACTIONS (8)
  - Hypoaesthesia [Unknown]
  - Formication [Not Recovered/Not Resolved]
  - Burning sensation [Unknown]
  - Peripheral coldness [Unknown]
  - Paraesthesia [Unknown]
  - Pyrexia [Not Recovered/Not Resolved]
  - Quality of life decreased [Unknown]
  - Arthralgia [Unknown]

NARRATIVE: CASE EVENT DATE: 2017
